FAERS Safety Report 13689489 (Version 2)
Quarter: 2017Q3

REPORT INFORMATION
  Report Type: Spontaneous
  Country: US (occurrence: US)
  Receive Date: 20170626
  Receipt Date: 20170728
  Transmission Date: 20171127
  Serious: Yes (Other)
  Sender: FDA-Public Use
  Company Number: US-GLAXOSMITHKLINE-US2017097177

PATIENT
  Age: 77 Year
  Sex: Female

DRUGS (1)
  1. ANORO ELLIPTA [Suspect]
     Active Substance: UMECLIDINIUM BROMIDE\VILANTEROL TRIFENATATE
     Indication: DYSPNOEA
     Dosage: 1 PUFF(S), UNK
     Route: 055
     Dates: start: 20170615

REACTIONS (9)
  - Somnolence [Not Recovered/Not Resolved]
  - Tendonitis [Not Recovered/Not Resolved]
  - Dysphonia [Unknown]
  - Nodule [Unknown]
  - Condition aggravated [Not Recovered/Not Resolved]
  - Product use in unapproved indication [Unknown]
  - Lung neoplasm malignant [Unknown]
  - Stress [Unknown]
  - Pulmonary mass [Unknown]

NARRATIVE: CASE EVENT DATE: 20170615
